FAERS Safety Report 5011749-4 (Version None)
Quarter: 2006Q2

REPORT INFORMATION
  Report Type: 
  Country: None (occurrence: None)
  Receive Date: 20060526
  Receipt Date: 20060519
  Transmission Date: 20061013
  Serious: Yes (Hospitalization)
  Sender: FDA-Public Use
  Company Number: FR-JNJFOC-20060505190

PATIENT
  Age: 50 Year
  Sex: Male

DRUGS (1)
  1. HALDOL [Suspect]
     Route: 030

REACTIONS (2)
  - COLITIS ISCHAEMIC [None]
  - ILEUS [None]
